FAERS Safety Report 4772645-0 (Version None)
Quarter: 2005Q3

REPORT INFORMATION
  Report Type: 
  Country: None (occurrence: None)
  Receive Date: 20050914
  Receipt Date: 20041112
  Transmission Date: 20060218
  Serious: Yes (Life-Threatening, Hospitalization)
  Sender: FDA-Public Use
  Company Number: 163-20785-04110335

PATIENT
  Age: 66 Year
  Sex: Male

DRUGS (13)
  1. THALOMID [Suspect]
     Indication: MULTIPLE MYELOMA
     Dosage: 200 MG, DAILY, ORAL
     Route: 048
     Dates: start: 20040604, end: 20040101
  2. THALOMID [Suspect]
  3. FLOMAX [Concomitant]
  4. CLARINEX [Concomitant]
  5. ZOLOFT [Concomitant]
  6. SINGULAIR [Concomitant]
  7. PREVACID [Concomitant]
  8. ELAVIL [Concomitant]
  9. NEURONTIN [Concomitant]
  10. COREG [Concomitant]
  11. LASIX [Concomitant]
  12. GEMFIBROZIL [Concomitant]
  13. DECADRON [Concomitant]

REACTIONS (3)
  - DISEASE PROGRESSION [None]
  - RENAL FAILURE ACUTE [None]
  - SEPSIS [None]
